FAERS Safety Report 14912246 (Version 1)
Quarter: 2018Q2

REPORT INFORMATION
  Report Type: Spontaneous
  Country: US (occurrence: US)
  Receive Date: 20180430
  Receipt Date: 20180430
  Transmission Date: 20180711
  Serious: Yes (Death)
  Sender: FDA-Public Use
  Company Number: None

PATIENT
  Age: 63 Year
  Sex: Female

DRUGS (1)
  1. POMALYST [Suspect]
     Active Substance: POMALIDOMIDE
     Indication: PLASMA CELL MYELOMA
     Route: 048
     Dates: start: 20180409, end: 20180419

REACTIONS (4)
  - Pain [None]
  - Dehydration [None]
  - Disease progression [None]
  - Hyponatraemia [None]

NARRATIVE: CASE EVENT DATE: 20180421
